FAERS Safety Report 9251059 (Version 1)
Quarter: 2013Q1

REPORT INFORMATION
  Report Type: Spontaneous
  Country: US (occurrence: None)
  Receive Date: 20130305
  Receipt Date: 20130305
  Transmission Date: 20140127
  Serious: Yes (Disabling)
  Sender: FDA-Public Use
  Company Number: 163-21880-12071304

PATIENT
  Age: 56 Year
  Sex: Male

DRUGS (8)
  1. REVLIMID (LENALIDOMIDE) [Suspect]
     Indication: PLASMA CELL MYELOMA
     Dates: start: 20120122, end: 20120805
  2. DEXAMETHASONE (DEXAMETHASONE) [Concomitant]
  3. NEURONTIN (GABAPENTIN) [Concomitant]
  4. ZOMETA (ZOLEDRONIC ACID) [Concomitant]
  5. PRILOSEC [Concomitant]
  6. K-PHOS (POTASSIUM PHOSPHATE MONOBASIC) [Concomitant]
  7. OXYCONTIN (OXYCODONE HYDROCHLORIDE) [Concomitant]
  8. ASPIRIN (ACETYLSALICYLIC ACID) [Concomitant]

REACTIONS (1)
  - Deep vein thrombosis [None]
